FAERS Safety Report 9710805 (Version 1)
Quarter: 2013Q4

REPORT INFORMATION
  Report Type: Spontaneous
  Country: US (occurrence: US)
  Receive Date: 20131126
  Receipt Date: 20131126
  Transmission Date: 20140711
  Serious: No
  Sender: FDA-Public Use
  Company Number: US-BRISTOL-MYERS SQUIBB COMPANY-19014679

PATIENT
  Age: 69 Year
  Sex: Female
  Weight: 107.48 kg

DRUGS (6)
  1. BYETTA PEN DISPOSABLE [Suspect]
     Dates: start: 2007, end: 2008
  2. METFORMIN HCL [Suspect]
  3. LIPITOR [Concomitant]
  4. CRESTOR [Concomitant]
  5. VITAMIN D [Concomitant]
  6. BABY ASPIRIN [Concomitant]

REACTIONS (1)
  - Blood glucose increased [Unknown]
